FAERS Safety Report 13737242 (Version 1)
Quarter: 2017Q3

REPORT INFORMATION
  Report Type: Spontaneous
  Country: US (occurrence: US)
  Receive Date: 20170710
  Receipt Date: 20170710
  Transmission Date: 20171127
  Serious: No
  Sender: FDA-Public Use
  Company Number: US-SAOL THERAPEUTICS-2016SAO00202

PATIENT
  Sex: Female

DRUGS (5)
  1. BACLOFEN (ORAL) [Concomitant]
     Active Substance: BACLOFEN
     Route: 048
  2. BACLOFEN. [Suspect]
     Active Substance: BACLOFEN
     Indication: BACK PAIN
     Dosage: 59.5 ?G, \DAY
  3. BACLOFEN. [Suspect]
     Active Substance: BACLOFEN
     Indication: SPINAL PAIN
  4. SUFENTANIL [Suspect]
     Active Substance: SUFENTANIL
     Dosage: 595 ?G, \DAY
  5. CLONIDINE. [Suspect]
     Active Substance: CLONIDINE
     Dosage: 80.325 ?G/ML, UNK

REACTIONS (3)
  - Device infusion issue [Unknown]
  - Off label use [Unknown]
  - Pain [Unknown]

NARRATIVE: CASE EVENT DATE: 20160707
